FAERS Safety Report 13895443 (Version 1)
Quarter: 2017Q3

REPORT INFORMATION
  Report Type: Spontaneous
  Country: US (occurrence: US)
  Receive Date: 20170818
  Receipt Date: 20170818
  Transmission Date: 20171127
  Serious: Yes (Hospitalization, Disabling, Other)
  Sender: FDA-Public Use
  Company Number: None

PATIENT
  Age: 54 Year
  Sex: Female
  Weight: 90 kg

DRUGS (3)
  1. LEVAQUIN [Suspect]
     Active Substance: LEVOFLOXACIN
     Indication: URINARY TRACT INFECTION
     Route: 048
     Dates: start: 20130819, end: 20170614
  2. LEVAQUIN [Suspect]
     Active Substance: LEVOFLOXACIN
     Indication: SINUSITIS
     Route: 048
     Dates: start: 20130819, end: 20170614
  3. CIPROFLOXACIN. [Suspect]
     Active Substance: CIPROFLOXACIN

REACTIONS (17)
  - Myalgia [None]
  - Weight increased [None]
  - Decreased activity [None]
  - Gait disturbance [None]
  - Asthenia [None]
  - Fatigue [None]
  - Mental disorder [None]
  - Depression [None]
  - Palpitations [None]
  - Tendonitis [None]
  - Gastric disorder [None]
  - Fibromyalgia [None]
  - Irritable bowel syndrome [None]
  - Ulcer [None]
  - Dissociation [None]
  - Panic attack [None]
  - Cardiac disorder [None]

NARRATIVE: CASE EVENT DATE: 20130819
